FAERS Safety Report 7906283-5 (Version None)
Quarter: 2011Q4

REPORT INFORMATION
  Report Type: 
  Country: None (occurrence: None)
  Receive Date: 20111109
  Receipt Date: 20111109
  Transmission Date: 20120403
  Serious: Yes (Other)
  Sender: FDA-Public Use
  Company Number: None

PATIENT
  Age: 72 Year
  Sex: Female
  Weight: 81.6475 kg

DRUGS (1)
  1. HYDROCORTISONE [Suspect]
     Indication: HAEMORRHOID OPERATION
     Dosage: 1 SUPP 2 X RECTLE
     Route: 054
     Dates: start: 20110930, end: 20111001

REACTIONS (5)
  - BURNING SENSATION [None]
  - ABDOMINAL PAIN [None]
  - PAIN [None]
  - NAUSEA [None]
  - IRRITABILITY [None]
